FAERS Safety Report 5626495-3 (Version None)
Quarter: 2008Q1

REPORT INFORMATION
  Report Type: 
  Country: None (occurrence: None)
  Receive Date: 20080211
  Receipt Date: 20080128
  Transmission Date: 20080703
  Serious: Yes (Other)
  Sender: FDA-Public Use
  Company Number: 2008US000288

PATIENT
  Age: 29 Year
  Sex: Female

DRUGS (3)
  1. PROGRAF [Suspect]
     Indication: RENAL TRANSPLANT
     Dosage: 2/, UID/QD
  2. CELLCEPT [Concomitant]
  3. MYFORTIC [Concomitant]

REACTIONS (2)
  - DEPRESSIVE SYMPTOM [None]
  - FEELING HOT [None]
